FAERS Safety Report 18401483 (Version 1)
Quarter: 2020Q4

REPORT INFORMATION
  Report Type: Report from Study
  Country: US (occurrence: US)
  Receive Date: 20201020
  Receipt Date: 20201020
  Transmission Date: 20210114
  Serious: Yes (Congenital Anomaly, Other)
  Sender: FDA-Public Use
  Company Number: US-AUROBINDO-AUR-APL-2019-087648

PATIENT

DRUGS (6)
  1. PHENYTOIN. [Suspect]
     Active Substance: PHENYTOIN
     Indication: EPILEPSY
     Dosage: 500 MILLIGRAM
     Route: 064
  2. CARBAMAZEPINE. [Suspect]
     Active Substance: CARBAMAZEPINE
     Indication: AFFECTIVE DISORDER
  3. PHENYTOIN. [Suspect]
     Active Substance: PHENYTOIN
     Indication: AFFECTIVE DISORDER
  4. TOPIRAMATE. [Suspect]
     Active Substance: TOPIRAMATE
     Indication: AFFECTIVE DISORDER
  5. CARBAMAZEPINE. [Suspect]
     Active Substance: CARBAMAZEPINE
     Indication: EPILEPSY
     Dosage: 1000 MILLIGRAM
     Route: 064
  6. TOPIRAMATE. [Suspect]
     Active Substance: TOPIRAMATE
     Indication: EPILEPSY
     Dosage: 400 MILLIGRAM
     Route: 064

REACTIONS (5)
  - Heart disease congenital [Unknown]
  - Syndactyly [Unknown]
  - Pulmonary malformation [Unknown]
  - Brain malformation [Unknown]
  - Foetal exposure during pregnancy [Unknown]
